FAERS Safety Report 6141304-4 (Version None)
Quarter: 2009Q1

REPORT INFORMATION
  Report Type: 
  Country: None (occurrence: None)
  Receive Date: 20090330
  Receipt Date: 20090330
  Transmission Date: 20090719
  Serious: No
  Sender: FDA-Public Use
  Company Number: None

PATIENT
  Age: 45 Year
  Sex: Female
  Weight: 60 kg

DRUGS (1)
  1. HYDROMORPHONE HCL [Suspect]
     Indication: PAIN MANAGEMENT
     Dosage: 0.2 MG/ML Q6 MINUTES (PCA) IV
     Route: 042
     Dates: start: 20090316

REACTIONS (2)
  - PRODUCT QUALITY ISSUE [None]
  - SEDATION [None]
